FAERS Safety Report 21238317 (Version 2)
Quarter: 2022Q3

REPORT INFORMATION
  Report Type: Other
  Country: CA (occurrence: None)
  Receive Date: 20220822
  Receipt Date: 20220830
  Transmission Date: 20221026
  Serious: Yes (Other)
  Sender: FDA-Public Use
  Company Number: CA-ROCHE-3123761

PATIENT
  Age: 77 Year
  Sex: Female
  Weight: 49 kg

DRUGS (15)
  1. ACTEMRA [Suspect]
     Active Substance: TOCILIZUMAB
     Indication: Rheumatoid arthritis
     Dosage: Q4 WKS, ONGOING-YES
     Route: 042
     Dates: start: 20211103
  2. PREDNISOLONE [Concomitant]
     Active Substance: PREDNISOLONE
  3. MOXIFLOXACIN [Concomitant]
     Active Substance: MOXIFLOXACIN
  4. BISOPROLOL [Concomitant]
     Active Substance: BISOPROLOL
  5. EZETIMIBE [Concomitant]
     Active Substance: EZETIMIBE
  6. FUROSEMIDE [Concomitant]
     Active Substance: FUROSEMIDE
  7. OMNARIS [Concomitant]
     Active Substance: CICLESONIDE
     Dosage: 50 MCG
  8. PANTOPRAZOLE SODIUM [Concomitant]
     Active Substance: PANTOPRAZOLE SODIUM
  9. PLAVIX [Concomitant]
     Active Substance: CLOPIDOGREL BISULFATE
  10. PRAZOSIN HYDROCHLORIDE [Concomitant]
     Active Substance: PRAZOSIN HYDROCHLORIDE
     Dosage: 3 TABS
  11. ALBUTEROL SULFATE [Concomitant]
     Active Substance: ALBUTEROL SULFATE
  12. SIMVASTATIN [Concomitant]
     Active Substance: SIMVASTATIN
  13. SPIRIVA [Concomitant]
     Active Substance: TIOTROPIUM BROMIDE MONOHYDRATE
     Dosage: 18 MCG
  14. SYNTHROID [Concomitant]
     Active Substance: LEVOTHYROXINE SODIUM
     Dosage: 88 MCG
  15. NITROGLYCERIN [Concomitant]
     Active Substance: NITROGLYCERIN

REACTIONS (4)
  - Pneumonia [Recovered/Resolved]
  - Uterine prolapse [Recovered/Resolved]
  - Weight increased [Unknown]
  - Ear infection [Recovered/Resolved]

NARRATIVE: CASE EVENT DATE: 20220301
